FAERS Safety Report 8869217 (Version 1)
Quarter: 2012Q4

REPORT INFORMATION
  Report Type: Spontaneous
  Country: JP (occurrence: None)
  Receive Date: 20121024
  Receipt Date: 20121024
  Transmission Date: 20130627
  Serious: Yes (Hospitalization)
  Sender: FDA-Public Use
  Company Number: NSR_00703_2012

PATIENT
  Age: 81 Year
  Sex: Male

DRUGS (1)
  1. HYDROXYZINE PAMOATE [Suspect]
     Indication: ANTIALLERGIC THERAPY
     Dosage: (DF)

REACTIONS (2)
  - Acute generalised exanthematous pustulosis [None]
  - Psoriasis [None]
